FAERS Safety Report 10614611 (Version 3)
Quarter: 2015Q1

REPORT INFORMATION
  Report Type: Report from Study
  Country: BE (occurrence: BE)
  Receive Date: 20141130
  Receipt Date: 20150126
  Transmission Date: 20150720
  Serious: Yes (Other)
  Sender: FDA-Public Use
  Company Number: BE-BRISTOL-MYERS SQUIBB COMPANY-21644588

PATIENT
  Age: 61 Year
  Sex: Female

DRUGS (11)
  1. 5-FLUOROURACIL [Concomitant]
     Active Substance: FLUOROURACIL
     Indication: ADENOCARCINOMA OF COLON
     Route: 065
  2. PANTOMED                           /00178901/ [Concomitant]
  3. OXALIPLATIN. [Concomitant]
     Active Substance: OXALIPLATIN
     Indication: ADENOCARCINOMA OF COLON
     Route: 065
  4. NAPROXENE                          /00256201/ [Concomitant]
     Active Substance: NAPROXEN
  5. BAREXAL [Concomitant]
  6. FOLINIC ACID [Concomitant]
     Active Substance: LEUCOVORIN
     Indication: ADENOCARCINOMA OF COLON
     Route: 065
  7. ZOVIRAX [Concomitant]
     Active Substance: ACYCLOVIR
     Indication: ORAL HERPES
  8. CETUXIMAB [Suspect]
     Active Substance: CETUXIMAB
     Indication: ADENOCARCINOMA OF COLON
     Dosage: 417 MG, QD
     Route: 042
     Dates: start: 20140929
  9. CORSODYL [Concomitant]
     Active Substance: CHLORHEXIDINE GLUCONATE
  10. MOVICOL                            /01749801/ [Concomitant]
  11. LITICAN                            /00690801/ [Concomitant]
     Indication: NAUSEA

REACTIONS (1)
  - Epilepsy [Unknown]

NARRATIVE: CASE EVENT DATE: 20141108
